FAERS Safety Report 19986067 (Version 6)
Quarter: 2022Q2

REPORT INFORMATION
  Report Type: Report from Study
  Country: TR (occurrence: None)
  Receive Date: 20211022
  Receipt Date: 20220623
  Transmission Date: 20220720
  Serious: Yes (Life-Threatening, Hospitalization)
  Sender: FDA-Public Use
  Company Number: TR-ROCHE-2941447

PATIENT
  Age: 65 Year
  Sex: Male
  Weight: 86 kg

DRUGS (99)
  1. BEVACIZUMAB [Suspect]
     Active Substance: BEVACIZUMAB
     Indication: Bile duct cancer
     Dosage: THE START DATE OF MOST RECENT DOSE OF BLINDED BEVACIZUMAB PRIOR TO AE AND SAE (SERIOUS ADVERSE EVENT
     Route: 042
     Dates: start: 20210709
  2. ATEZOLIZUMAB [Suspect]
     Active Substance: ATEZOLIZUMAB
     Indication: Bile duct cancer
     Dosage: THE START DATE OF MOST RECENT DOSE OF ATEZOLIZUMAB (1200 MG) PRIOR TO AE AND SAE (SERIOUS ADVERSE EV
     Route: 041
     Dates: start: 20210709
  3. CISPLATIN [Suspect]
     Active Substance: CISPLATIN
     Indication: Bile duct cancer
     Dosage: ON DAYS 1 AND 8 OF EACH 21-DAY CYCLE?THE START DATE OF MOST RECENT DOSE OF CISPLATIN (48.5 MG) PRIOR
     Route: 042
     Dates: start: 20210709
  4. GEMCITABINE [Suspect]
     Active Substance: GEMCITABINE
     Indication: Bile duct cancer
     Dosage: ON DAYS 1 AND 8 OF EACH 21-DAY CYCLE?THE START DATE OF MOST RECENT DOSE OF GEMCITABINE (1940 MG) PRI
     Route: 042
     Dates: start: 20210709
  5. ALATAB [Concomitant]
     Indication: Type 2 diabetes mellitus
  6. ULTROX (TURKEY) [Concomitant]
     Indication: Hyperlipidaemia
  7. CARVEDILOL [Concomitant]
     Active Substance: CARVEDILOL
  8. DIOVAN [Concomitant]
     Active Substance: VALSARTAN
  9. NYSTATIN [Concomitant]
     Active Substance: NYSTATIN
     Indication: Stomatitis
     Dates: start: 20210803, end: 20210927
  10. BLACK MULBERRY [Concomitant]
     Indication: Stomatitis
     Dates: start: 20210803, end: 20210927
  11. CARBONATE [Concomitant]
     Indication: Stomatitis
     Dates: start: 20210803, end: 20210927
  12. OFNOL [Concomitant]
     Indication: Conjunctivitis
     Dates: start: 20210806, end: 20210927
  13. ASPIRIN [Concomitant]
     Active Substance: ASPIRIN
     Dates: start: 20210804
  14. URSODIOL [Concomitant]
     Active Substance: URSODIOL
     Dates: start: 20210902
  15. METFORMIN HYDROCHLORIDE\VILDAGLIPTIN [Concomitant]
     Active Substance: METFORMIN HYDROCHLORIDE\VILDAGLIPTIN
     Indication: Type 2 diabetes mellitus
     Dates: start: 20210901
  16. METFORMIN HYDROCHLORIDE\VILDAGLIPTIN [Concomitant]
     Active Substance: METFORMIN HYDROCHLORIDE\VILDAGLIPTIN
     Dates: start: 20210805
  17. PANTOPRAZOLE SODIUM [Concomitant]
     Active Substance: PANTOPRAZOLE SODIUM
     Dates: start: 20210901
  18. PANTOPRAZOLE SODIUM [Concomitant]
     Active Substance: PANTOPRAZOLE SODIUM
     Dates: start: 20210812
  19. DUPHALAC [Concomitant]
     Active Substance: LACTULOSE
     Indication: Constipation
     Dates: start: 20210917, end: 20210921
  20. METOCLOPRAMIDE [Concomitant]
     Active Substance: METOCLOPRAMIDE
     Indication: Nausea
     Dates: start: 20210920
  21. LASIX [Concomitant]
     Active Substance: FUROSEMIDE
     Indication: Premedication
     Dates: start: 20210921, end: 20210921
  22. LASIX [Concomitant]
     Active Substance: FUROSEMIDE
     Dates: start: 20210927, end: 20210927
  23. LASIX [Concomitant]
     Active Substance: FUROSEMIDE
     Dates: start: 20211011, end: 20211011
  24. LASIX [Concomitant]
     Active Substance: FUROSEMIDE
     Dates: start: 20210802, end: 20210802
  25. ALOXI [Concomitant]
     Active Substance: PALONOSETRON HYDROCHLORIDE
     Indication: Premedication
     Dates: start: 20210921, end: 20210921
  26. ALOXI [Concomitant]
     Active Substance: PALONOSETRON HYDROCHLORIDE
     Dates: start: 20210927, end: 20210927
  27. ALOXI [Concomitant]
     Active Substance: PALONOSETRON HYDROCHLORIDE
     Dates: start: 20211011, end: 20211011
  28. ALOXI [Concomitant]
     Active Substance: PALONOSETRON HYDROCHLORIDE
     Dates: start: 20210709, end: 20210709
  29. ALOXI [Concomitant]
     Active Substance: PALONOSETRON HYDROCHLORIDE
     Dates: start: 20210716, end: 20210716
  30. ALOXI [Concomitant]
     Active Substance: PALONOSETRON HYDROCHLORIDE
     Dates: start: 20210802, end: 20210802
  31. ALOXI [Concomitant]
     Active Substance: PALONOSETRON HYDROCHLORIDE
     Dates: start: 20210816, end: 20210816
  32. ALOXI [Concomitant]
     Active Substance: PALONOSETRON HYDROCHLORIDE
     Dates: start: 20211025, end: 20211025
  33. ALOXI [Concomitant]
     Active Substance: PALONOSETRON HYDROCHLORIDE
     Dates: start: 20211123, end: 20211123
  34. ALOXI [Concomitant]
     Active Substance: PALONOSETRON HYDROCHLORIDE
     Dates: start: 20211108, end: 20211108
  35. PHENIRAMINE [Concomitant]
     Active Substance: PHENIRAMINE
     Indication: Premedication
     Dates: start: 20210921, end: 20210921
  36. PHENIRAMINE [Concomitant]
     Active Substance: PHENIRAMINE
     Dates: start: 20210927, end: 20210927
  37. PHENIRAMINE [Concomitant]
     Active Substance: PHENIRAMINE
     Dates: start: 20211011, end: 20211011
  38. PHENIRAMINE [Concomitant]
     Active Substance: PHENIRAMINE
     Dates: start: 20210709, end: 20210709
  39. PHENIRAMINE [Concomitant]
     Active Substance: PHENIRAMINE
     Dates: start: 20210716, end: 20210716
  40. PHENIRAMINE [Concomitant]
     Active Substance: PHENIRAMINE
     Dates: start: 20210802, end: 20210802
  41. PHENIRAMINE [Concomitant]
     Active Substance: PHENIRAMINE
     Dates: start: 20210816, end: 20210816
  42. PHENIRAMINE [Concomitant]
     Active Substance: PHENIRAMINE
     Dates: start: 20211025, end: 20211025
  43. PHENIRAMINE [Concomitant]
     Active Substance: PHENIRAMINE
     Dates: start: 20211123, end: 20211123
  44. PHENIRAMINE [Concomitant]
     Active Substance: PHENIRAMINE
     Dates: start: 20211108, end: 20211108
  45. DEKORT [Concomitant]
     Active Substance: DEXAMETHASONE
     Route: 042
     Dates: start: 20210921, end: 20210921
  46. DEKORT [Concomitant]
     Active Substance: DEXAMETHASONE
     Route: 042
     Dates: start: 20210927, end: 20210927
  47. DEKORT [Concomitant]
     Active Substance: DEXAMETHASONE
     Route: 042
     Dates: start: 20211011, end: 20211011
  48. DEKORT [Concomitant]
     Active Substance: DEXAMETHASONE
     Route: 042
     Dates: start: 20210709, end: 20210709
  49. DEKORT [Concomitant]
     Active Substance: DEXAMETHASONE
     Route: 042
     Dates: start: 20210716, end: 20210716
  50. DEKORT [Concomitant]
     Active Substance: DEXAMETHASONE
     Route: 042
     Dates: start: 20210802, end: 20210802
  51. DEKORT [Concomitant]
     Active Substance: DEXAMETHASONE
     Route: 042
     Dates: start: 20210816, end: 20210816
  52. DEKORT [Concomitant]
     Active Substance: DEXAMETHASONE
     Route: 042
     Dates: start: 20211025, end: 20211025
  53. DEKORT [Concomitant]
     Active Substance: DEXAMETHASONE
     Route: 042
     Dates: start: 20211123, end: 20211123
  54. DEKORT [Concomitant]
     Active Substance: DEXAMETHASONE
     Route: 042
     Dates: start: 20211108, end: 20211108
  55. EMEND [Concomitant]
     Active Substance: APREPITANT
     Indication: Premedication
     Dates: start: 20210921, end: 20210921
  56. EMEND [Concomitant]
     Active Substance: APREPITANT
     Dates: start: 20211011, end: 20211011
  57. EMEND [Concomitant]
     Active Substance: APREPITANT
     Dates: start: 20210709, end: 20210709
  58. EMEND [Concomitant]
     Active Substance: APREPITANT
     Dates: start: 20210802, end: 20210802
  59. EMEND [Concomitant]
     Active Substance: APREPITANT
     Dates: start: 20211123, end: 20211123
  60. EMEND [Concomitant]
     Active Substance: APREPITANT
     Dates: start: 20211108, end: 20211108
  61. HUMAN RED BLOOD CELL [Concomitant]
     Active Substance: HUMAN RED BLOOD CELL
     Indication: Anaemia
     Dates: start: 20211011, end: 20211011
  62. HUMAN RED BLOOD CELL [Concomitant]
     Active Substance: HUMAN RED BLOOD CELL
     Dates: start: 20211117, end: 20211117
  63. PAROL [Concomitant]
     Active Substance: ACETAMINOPHEN
     Indication: Pyrexia
     Dates: start: 20211015, end: 20211015
  64. PAROL [Concomitant]
     Active Substance: ACETAMINOPHEN
     Indication: Headache
     Dates: start: 20210711, end: 20210813
  65. PAROL [Concomitant]
     Active Substance: ACETAMINOPHEN
     Dates: start: 20211113, end: 20211118
  66. GLICLAZIDE [Concomitant]
     Active Substance: GLICLAZIDE
     Indication: Type 2 diabetes mellitus
     Dates: start: 20210805
  67. DROPIA [Concomitant]
     Indication: Type 2 diabetes mellitus
     Dates: start: 20210805
  68. ASPIRIN [Concomitant]
     Active Substance: ASPIRIN
     Dates: start: 20210803
  69. ONDANSETRON HYDROCHLORIDE [Concomitant]
     Active Substance: ONDANSETRON HYDROCHLORIDE
     Indication: Nausea
     Dates: start: 20210727, end: 20210730
  70. ONDANSETRON HYDROCHLORIDE [Concomitant]
     Active Substance: ONDANSETRON HYDROCHLORIDE
     Dates: start: 20211113, end: 20211118
  71. NOVALGIN (TURKEY) [Concomitant]
     Indication: Pyrexia
     Dates: start: 20210727, end: 20210730
  72. PANTOPRAZOLE SODIUM [Concomitant]
     Active Substance: PANTOPRAZOLE SODIUM
     Dates: start: 20210727, end: 20210730
  73. ENOX (TURKEY) [Concomitant]
     Dates: start: 20210727, end: 20210730
  74. POTASSIUM [Concomitant]
     Active Substance: POTASSIUM
     Indication: Premedication
     Dates: start: 20210709, end: 20210709
  75. POTASSIUM [Concomitant]
     Active Substance: POTASSIUM
     Dates: start: 20210716, end: 20210716
  76. POTASSIUM [Concomitant]
     Active Substance: POTASSIUM
     Dates: start: 20210802, end: 20210802
  77. POTASSIUM [Concomitant]
     Active Substance: POTASSIUM
     Dates: start: 20210816, end: 20210816
  78. POTASSIUM [Concomitant]
     Active Substance: POTASSIUM
     Dates: start: 20211025, end: 20211025
  79. POTASSIUM [Concomitant]
     Active Substance: POTASSIUM
     Dates: start: 20211123, end: 20211123
  80. POTASSIUM [Concomitant]
     Active Substance: POTASSIUM
     Dates: start: 20211108, end: 20211108
  81. URSODIOL [Concomitant]
     Active Substance: URSODIOL
     Dates: start: 20210901
  82. MAGNESIUM [Concomitant]
     Active Substance: MAGNESIUM
     Indication: Premedication
     Dates: start: 20210709, end: 20210709
  83. MAGNESIUM [Concomitant]
     Active Substance: MAGNESIUM
     Indication: Hypomagnesaemia
     Dates: start: 20210716, end: 20210716
  84. MAGNESIUM [Concomitant]
     Active Substance: MAGNESIUM
     Dates: start: 20210802, end: 20210802
  85. MAGNESIUM [Concomitant]
     Active Substance: MAGNESIUM
     Dates: start: 20210806, end: 20210809
  86. MAGNESIUM [Concomitant]
     Active Substance: MAGNESIUM
     Dates: start: 20210816, end: 20210816
  87. MAGNESIUM [Concomitant]
     Active Substance: MAGNESIUM
     Dates: start: 20211025, end: 20211025
  88. MAGNESIUM [Concomitant]
     Active Substance: MAGNESIUM
     Dates: start: 20211123, end: 20211123
  89. MAGNESIUM [Concomitant]
     Active Substance: MAGNESIUM
     Dates: start: 20211108, end: 20211108
  90. ANDOREX [Concomitant]
     Indication: Stomatitis
     Dates: start: 20210803, end: 20210901
  91. CERNEVIT [Concomitant]
     Active Substance: VITAMINS
     Dates: start: 20210804, end: 20210804
  92. MYCAMINE [Concomitant]
     Active Substance: MICAFUNGIN SODIUM
     Indication: Stomatitis
     Dates: start: 20210805, end: 20210812
  93. LOTEBRA [Concomitant]
     Indication: Conjunctivitis
     Dates: start: 20210806, end: 20210901
  94. ALBUMIN HUMAN [Concomitant]
     Active Substance: ALBUMIN HUMAN
     Indication: Hypoalbuminaemia
     Dates: start: 20210809, end: 20210811
  95. RESOURCE GLUTAMIN [Concomitant]
     Dates: start: 20210804
  96. SUCRALFATE [Concomitant]
     Active Substance: SUCRALFATE
     Indication: Stomatitis
     Dates: start: 20210804, end: 20210901
  97. NOVAQUA [Concomitant]
     Indication: Conjunctivitis
     Dates: start: 20210805, end: 20210901
  98. ZOLAX (TURKEY) [Concomitant]
     Indication: Stomatitis
     Dates: start: 20210813, end: 20210901
  99. ZYLET [Concomitant]
     Active Substance: LOTEPREDNOL ETABONATE\TOBRAMYCIN
     Indication: Conjunctivitis
     Dates: start: 20210806, end: 20210901

REACTIONS (2)
  - Biliary tract infection [Recovered/Resolved]
  - White blood cell count decreased [Recovered/Resolved]

NARRATIVE: CASE EVENT DATE: 20210802
